FAERS Safety Report 7350193-1 (Version None)
Quarter: 2011Q1

REPORT INFORMATION
  Report Type: 
  Country: None (occurrence: None)
  Receive Date: 20110314
  Receipt Date: 20110304
  Transmission Date: 20110831
  Serious: Yes (Other)
  Sender: FDA-Public Use
  Company Number: B0705312A

PATIENT
  Sex: Female

DRUGS (5)
  1. TEMAZEPAM [Concomitant]
  2. VITALGINE [Concomitant]
  3. SERETIDE [Suspect]
     Dosage: 1PUFF TWICE PER DAY
     Route: 055
     Dates: start: 20100901
  4. HEXAQUINE [Concomitant]
  5. KARDEGIC [Concomitant]

REACTIONS (1)
  - BLINDNESS TRANSIENT [None]
